FAERS Safety Report 20063996 (Version 2)
Quarter: 2021Q4

REPORT INFORMATION
  Report Type: Spontaneous
  Country: CZ (occurrence: CZ)
  Receive Date: 20211112
  Receipt Date: 20211116
  Transmission Date: 20220303
  Serious: Yes (Hospitalization, Other)
  Sender: FDA-Public Use
  Company Number: CZ-NOVARTISPH-NVSC2021CZ256624

PATIENT
  Age: 41 Year
  Sex: Male

DRUGS (7)
  1. TAMSULOSIN HYDROCHLORIDE [Suspect]
     Active Substance: TAMSULOSIN HYDROCHLORIDE
     Indication: Renal stone removal
     Dosage: 0.4 MG, ONCE DAILY, (0-0-1)
     Route: 065
  2. TAMSULOSIN HYDROCHLORIDE [Suspect]
     Active Substance: TAMSULOSIN HYDROCHLORIDE
     Indication: Nephrolithiasis
  3. TAMSULOSIN HYDROCHLORIDE [Suspect]
     Active Substance: TAMSULOSIN HYDROCHLORIDE
     Indication: Ureterolithiasis
  4. METAMIZOLE;PITOFENONE [Concomitant]
     Indication: Pain
     Dosage: 30-30-30 GTT, THRICE DAILY
     Route: 065
  5. DICLOFENAC [Concomitant]
     Active Substance: DICLOFENAC
     Indication: Pain
     Dosage: 50 MG, THRICE DAILY (1-1-1)
     Route: 065
  6. FELODIPINE [Concomitant]
     Active Substance: FELODIPINE
     Indication: Product used for unknown indication
     Dosage: 5 MG, ONCE DAILY (1-0-0)
     Route: 065
  7. AMISULPRIDE [Concomitant]
     Active Substance: AMISULPRIDE
     Indication: Product used for unknown indication
     Dosage: 200 MG, ONCE DAILY (0-0-1)
     Route: 065

REACTIONS (3)
  - Priapism [Recovered/Resolved with Sequelae]
  - Product use in unapproved indication [Unknown]
  - Off label use [Unknown]
